FAERS Safety Report 8287204-5 (Version None)
Quarter: 2012Q2

REPORT INFORMATION
  Report Type: 
  Country: None (occurrence: None)
  Receive Date: 20120411
  Receipt Date: 20120328
  Transmission Date: 20120825
  Serious: Yes (Death)
  Sender: FDA-Public Use
  Company Number: B0793109A

PATIENT
  Age: 9 Month
  Sex: Female

DRUGS (10)
  1. IFOSFAMIDE [Concomitant]
  2. DOXORUBICIN HYDROCHLORIDE [Concomitant]
  3. CARBOPLATIN [Suspect]
     Indication: BONE MARROW TRANSPLANT
  4. CISPLATIN [Concomitant]
  5. DACARBAZINE [Concomitant]
  6. VINCRISTINE [Concomitant]
  7. ETOPOSIDE [Suspect]
     Indication: BONE MARROW TRANSPLANT
  8. CYCLOPHOSPHAMIDE [Concomitant]
  9. MELPHALAN HYDROCHLORIDE [Suspect]
     Indication: BONE MARROW TRANSPLANT
  10. IOBENGUANE (FORMULATION UNKNOWN) (IOBENGUANE) [Suspect]
     Indication: BONE MARROW TRANSPLANT
     Dosage: 100 MCI

REACTIONS (2)
  - GASTROINTESTINAL HAEMORRHAGE [None]
  - MUCOSAL INFLAMMATION [None]
